FAERS Safety Report 8819154 (Version 2)
Quarter: 2013Q1

REPORT INFORMATION
  Report Type: Spontaneous
  Country: US (occurrence: US)
  Receive Date: 20121001
  Receipt Date: 20130204
  Transmission Date: 20140127
  Serious: No
  Sender: FDA-Public Use
  Company Number: US-PFIZER INC-2012240563

PATIENT
  Age: 62 Year
  Sex: Female
  Weight: 59.4 kg

DRUGS (4)
  1. PRISTIQ [Suspect]
     Indication: DEPRESSION
     Dosage: 50 MG, DAILY
     Dates: start: 20120920
  2. PRISTIQ [Suspect]
     Indication: ANXIETY
  3. VALIUM [Suspect]
     Indication: ANXIETY
     Dosage: UNK
     Dates: start: 20120921
  4. IBUPROFEN [Suspect]
     Indication: HEADACHE
     Dosage: 600 MG, ONCE
     Route: 048
     Dates: start: 20120921, end: 20120921

REACTIONS (10)
  - Headache [Recovered/Resolved]
  - Feeling abnormal [Recovered/Resolved]
  - Crying [Recovered/Resolved]
  - Abdominal discomfort [Recovered/Resolved]
  - Dysgeusia [Recovered/Resolved]
  - Dry mouth [Not Recovered/Not Resolved]
  - Decreased appetite [Not Recovered/Not Resolved]
  - Constipation [Not Recovered/Not Resolved]
  - Poor quality sleep [Not Recovered/Not Resolved]
  - Drug ineffective [Not Recovered/Not Resolved]
